FAERS Safety Report 7536519-4 (Version None)
Quarter: 2011Q2

REPORT INFORMATION
  Report Type: 
  Country: None (occurrence: None)
  Receive Date: 20110609
  Receipt Date: 20110526
  Transmission Date: 20111010
  Serious: Yes (Other)
  Sender: FDA-Public Use
  Company Number: US-CELGENEUS-163-21880-11053644

PATIENT
  Age: 70 Year
  Sex: Male

DRUGS (16)
  1. BENAZEPRIL HYDROCHLORIDE [Concomitant]
     Route: 065
  2. SIMVASTATIN [Concomitant]
     Route: 065
  3. FAMOTIDINE [Concomitant]
     Route: 065
  4. POTASSIUM CHLORIDE [Concomitant]
     Route: 065
  5. HYDROCODONE BITARTRATE AND ACETAMINOPHEN [Concomitant]
     Route: 065
  6. ATENOLOL [Concomitant]
     Route: 065
  7. FUROSEMIDE [Concomitant]
     Route: 065
  8. REVLIMID [Suspect]
     Indication: MULTIPLE MYELOMA
     Dosage: 25 MILLIGRAM
     Route: 048
     Dates: start: 20090201
  9. TIOTROPIUM [Concomitant]
     Route: 065
  10. ALBUTEROL SULFATE AUTOHALER [Concomitant]
     Route: 065
  11. ASPIRIN [Concomitant]
     Route: 065
  12. METOCLOPRAMIDE [Concomitant]
     Route: 065
  13. IBUPROFEN [Concomitant]
     Route: 065
  14. LANSOPRAZOLE [Concomitant]
     Route: 065
  15. PREDNISONE [Concomitant]
     Route: 065
  16. BECLOMETHASONE [Concomitant]
     Route: 065

REACTIONS (2)
  - SWELLING [None]
  - ORAL DISCOMFORT [None]
